FAERS Safety Report 6596821 (Version 3)
Quarter: 2016Q2

REPORT INFORMATION
  Report Type: Spontaneous
  Country: US (occurrence: US)
  Receive Date: 20080328
  Receipt Date: 20160411
  Transmission Date: 20160815
  Serious: Yes (Hospitalization, Other)
  Sender: FDA-Public Use
  Company Number: US-BAYER-US-2006-002355

PATIENT
  Age: 24 Year
  Sex: Female
  Weight: 80 kg

DRUGS (2)
  1. MIRENA [Suspect]
     Active Substance: LEVONORGESTREL
     Indication: CONTRACEPTION
     Dosage: 20 MCG/24HR, CONT
     Route: 015
     Dates: start: 20030129, end: 20060217
  2. MIRENA [Suspect]
     Active Substance: LEVONORGESTREL
     Indication: CONTRACEPTION
     Dosage: 20 MCG/24HR, CONT
     Route: 015
     Dates: start: 20041229, end: 20060217

REACTIONS (11)
  - Uterine perforation [Not Recovered/Not Resolved]
  - Medication error [Recovered/Resolved]
  - Intervertebral disc protrusion [Unknown]
  - Drug ineffective [None]
  - Back pain [None]
  - Uterine contractions during pregnancy [None]
  - Pregnancy with contraceptive device [Recovered/Resolved]
  - Device use error [None]
  - Device expulsion [None]
  - Dehydration [Unknown]
  - Peritoneal adhesions [None]

NARRATIVE: CASE EVENT DATE: 20040124
